FAERS Safety Report 5757809-1 (Version None)
Quarter: 2008Q2

REPORT INFORMATION
  Report Type: 
  Country: None (occurrence: None)
  Receive Date: 20080529
  Receipt Date: 20080516
  Transmission Date: 20081010
  Serious: Yes (Hospitalization)
  Sender: FDA-Public Use
  Company Number: 100#08#2008-02767

PATIENT
  Age: 39 Year
  Sex: Male

DRUGS (6)
  1. SALBUTAMOL (SALBUTAMOL) [Suspect]
     Indication: ASTHMA
     Dosage: RESPIRATORY (INHALATION); 5 MG FIVE TIMES DAILY RESPIRTORY (INHALATION); 250 MICROGRAMS INTRAVENOUS
     Route: 055
  2. PREDNISOLONE [Concomitant]
  3. AMOXICILLIN [Concomitant]
  4. IPRATROPIUM BROMIDE [Concomitant]
  5. HYDROCORTISONE [Concomitant]
  6. MAGNESIUM SULFATE (MAGNESIUM) [Concomitant]

REACTIONS (7)
  - DYSPNOEA [None]
  - HYPERCAPNIA [None]
  - LACTIC ACIDOSIS [None]
  - RESPIRATORY ACIDOSIS [None]
  - RESPIRATORY FAILURE [None]
  - SELF-MEDICATION [None]
  - WHEEZING [None]
